FAERS Safety Report 13188650 (Version 4)
Quarter: 2017Q2

REPORT INFORMATION
  Report Type: Report from Study
  Country: NL (occurrence: NL)
  Receive Date: 20170206
  Receipt Date: 20170404
  Transmission Date: 20170830
  Serious: Yes (Death, Hospitalization)
  Sender: FDA-Public Use
  Company Number: NL-ASTELLAS-2017US004430

PATIENT
  Age: 79 Year
  Sex: Male

DRUGS (2)
  1. ERLOTINIB [Suspect]
     Active Substance: ERLOTINIB
     Indication: LUNG NEOPLASM MALIGNANT
     Route: 048
     Dates: start: 20170117
  2. DOCETAXEL. [Suspect]
     Active Substance: DOCETAXEL
     Indication: LUNG NEOPLASM MALIGNANT
     Route: 042
     Dates: start: 20170116

REACTIONS (2)
  - Febrile neutropenia [Recovered/Resolved]
  - Urosepsis [Not Recovered/Not Resolved]

NARRATIVE: CASE EVENT DATE: 20170123
